FAERS Safety Report 23653497 (Version 2)
Quarter: 2024Q4

REPORT INFORMATION
  Report Type: Spontaneous
  Country: US (occurrence: US)
  Receive Date: 20240320
  Receipt Date: 20241223
  Transmission Date: 20250115
  Serious: No
  Sender: PFIZER
  Company Number: US-PFIZER INC-202400067442

PATIENT
  Age: 68 Year
  Sex: Female
  Weight: 99.773 kg

DRUGS (5)
  1. SOMAVERT [Suspect]
     Active Substance: PEGVISOMANT
     Indication: Acromegaly
     Dosage: THREE TIMES IN A WEEK
  2. SOMAVERT [Suspect]
     Active Substance: PEGVISOMANT
     Indication: Diabetes mellitus
     Dosage: 15 MG, DAILY
     Route: 058
     Dates: start: 20241216
  3. ATENOLOL [Concomitant]
     Active Substance: ATENOLOL
     Indication: Hypertension
     Dosage: ONE TIME IN DAY, IN THE MORNING
  4. GLIPIZIDE [Concomitant]
     Active Substance: GLIPIZIDE
     Indication: Diabetes mellitus
     Dosage: 5 MILLIGRAM; ONCE A DAY
  5. SYNTHROID [Concomitant]
     Active Substance: LEVOTHYROXINE SODIUM
     Indication: Hormone level abnormal
     Dosage: 50 MG, 1X/DAY

REACTIONS (3)
  - Malaise [Unknown]
  - Fatigue [Unknown]
  - Off label use [Unknown]
